FAERS Safety Report 4720956-7 (Version None)
Quarter: 2005Q3

REPORT INFORMATION
  Report Type: 
  Country: None (occurrence: None)
  Receive Date: 20050720
  Receipt Date: 20050707
  Transmission Date: 20060218
  Serious: Yes (Other)
  Sender: FDA-Public Use
  Company Number: 2005098317

PATIENT
  Sex: Female

DRUGS (1)
  1. AROMASIN [Suspect]
     Indication: ILL-DEFINED DISORDER
     Dosage: (25 MG),ORAL
     Route: 048

REACTIONS (1)
  - VAGINAL HAEMORRHAGE [None]
